FAERS Safety Report 9412666 (Version 2)
Quarter: 2013Q3

REPORT INFORMATION
  Report Type: Spontaneous
  Country: JP (occurrence: JP)
  Receive Date: 20130722
  Receipt Date: 20130725
  Transmission Date: 20140515
  Serious: Yes (Other)
  Sender: FDA-Public Use
  Company Number: JP-PFIZER INC-2013213695

PATIENT
  Age: 84 Year
  Sex: Female

DRUGS (1)
  1. LYRICA [Suspect]
     Dosage: 25 MG, 2X/DAY (IN THE MORNING AND EVENING SINCE 3 YEARS AGO)
     Route: 048

REACTIONS (1)
  - Haematemesis [Recovered/Resolved]
